FAERS Safety Report 5287468-6 (Version None)
Quarter: 2007Q1

REPORT INFORMATION
  Report Type: 
  Country: None (occurrence: None)
  Receive Date: 20070116
  Receipt Date: 20060921
  Transmission Date: 20070707
  Serious: No
  Sender: FDA-Public Use
  Company Number: 2006SP003392

PATIENT
  Age: 88 Year
  Sex: Male
  Weight: 53.0709 kg

DRUGS (10)
  1. LUNESTA [Suspect]
     Indication: INSOMNIA
     Dosage: 1 MG; HS; ORAL
     Route: 048
     Dates: start: 20060914, end: 20060920
  2. LASIX [Concomitant]
  3. ATORVASTATIN CALCIUM [Concomitant]
  4. LISINOPRIL [Concomitant]
  5. LANOXIN [Concomitant]
  6. PLAVIX [Concomitant]
  7. IMDUR [Concomitant]
  8. METOPROLOL SUCCINATE [Concomitant]
  9. ACETYLSALICYLIC ACID SRT [Concomitant]
  10. MULTIVITAMIINS [Concomitant]

REACTIONS (1)
  - INSOMNIA [None]
